FAERS Safety Report 9800694 (Version 1)
Quarter: 2014Q1

REPORT INFORMATION
  Report Type: Spontaneous
  Country: US (occurrence: US)
  Receive Date: 20140107
  Receipt Date: 20140107
  Transmission Date: 20141002
  Serious: Yes (Death, Hospitalization, Other)
  Sender: FDA-Public Use
  Company Number: US-SUN PHARMACEUTICAL INDUSTRIES LTD-2013SUN05336

PATIENT
  Age: 40 Year
  Sex: Male

DRUGS (3)
  1. TOPIRAMATE TABS 25MG [Suspect]
     Indication: CONVULSION
     Route: 065
  2. DIVALPROEX SODIUM [Concomitant]
  3. ROSIGLITAZONE/METFORMIN [Concomitant]

REACTIONS (6)
  - Heat stroke [Fatal]
  - Renal failure acute [Unknown]
  - Rhabdomyolysis [Unknown]
  - Myocardial infarction [Unknown]
  - Cardiac arrest [Unknown]
  - Metabolic acidosis [Unknown]
